FAERS Safety Report 13000492 (Version 1)
Quarter: 2016Q4

REPORT INFORMATION
  Report Type: Report from Study
  Country: PL (occurrence: PL)
  Receive Date: 20161206
  Receipt Date: 20161206
  Transmission Date: 20170207
  Serious: Yes (Other)
  Sender: FDA-Public Use
  Company Number: PL-ROCHE-1862093

PATIENT
  Age: 71 Year
  Sex: Female
  Weight: 67 kg

DRUGS (4)
  1. FLUOROURACIL. [Concomitant]
     Active Substance: FLUOROURACIL
  2. AVASTIN [Suspect]
     Active Substance: BEVACIZUMAB
     Indication: COLON CANCER
     Route: 065
     Dates: start: 201605, end: 201607
  3. FOLINIC ACID [Concomitant]
     Active Substance: LEUCOVORIN
  4. OXALIPLATIN. [Concomitant]
     Active Substance: OXALIPLATIN
     Indication: COLON CANCER
     Route: 065
     Dates: start: 201605, end: 201607

REACTIONS (1)
  - Disease progression [Not Recovered/Not Resolved]

NARRATIVE: CASE EVENT DATE: 201607
